FAERS Safety Report 25120515 (Version 1)
Quarter: 2025Q1

REPORT INFORMATION
  Report Type: Spontaneous
  Country: US (occurrence: US)
  Receive Date: 20250325
  Receipt Date: 20250325
  Transmission Date: 20250409
  Serious: Yes (Hospitalization)
  Sender: RIGEL PHARMACEUTICALS
  Company Number: US-RIGEL PHARMACEUTICALS, INC-20250300127

PATIENT
  Sex: Female

DRUGS (2)
  1. TAVALISSE [Suspect]
     Active Substance: FOSTAMATINIB
     Indication: Autoimmune haemolytic anaemia
     Dosage: 150 MG, BID
     Route: 048
     Dates: start: 20250301
  2. LACTULOSE [Concomitant]
     Active Substance: LACTULOSE
     Indication: Product used for unknown indication

REACTIONS (5)
  - Ammonia increased [Unknown]
  - Splenic artery embolisation [Unknown]
  - Depressed mood [Unknown]
  - Off label use [Unknown]
  - Product dose omission issue [Unknown]
